FAERS Safety Report 12256537 (Version 1)
Quarter: 2016Q2

REPORT INFORMATION
  Report Type: Spontaneous
  Country: CN (occurrence: CN)
  Receive Date: 20160412
  Receipt Date: 20160412
  Transmission Date: 20160815
  Serious: Yes (Hospitalization, Other)
  Sender: FDA-Public Use
  Company Number: CN-PFIZER INC-2016201456

PATIENT
  Age: 39 Year
  Sex: Male
  Weight: 61 kg

DRUGS (3)
  1. SODIUM CHLORIDE. [Concomitant]
     Active Substance: SODIUM CHLORIDE
     Dosage: 100 DF, 2X/DAY
     Route: 041
     Dates: start: 20151102, end: 20151106
  2. VORICONAZOLE. [Suspect]
     Active Substance: VORICONAZOLE
     Indication: INFECTION
     Dosage: 0.2 G, 2X/DAY
     Route: 048
     Dates: start: 20151017, end: 20151103
  3. CEFEPIME HYDROCHLORIDE. [Suspect]
     Active Substance: CEFEPIME HYDROCHLORIDE
     Indication: INFECTION
     Dosage: 2 G, 2X/DAY
     Route: 041
     Dates: start: 20151102, end: 20151106

REACTIONS (2)
  - Psychotic disorder [Recovered/Resolved]
  - Restlessness [Recovered/Resolved]

NARRATIVE: CASE EVENT DATE: 20151106
